FAERS Safety Report 13738673 (Version 1)
Quarter: 2017Q3

REPORT INFORMATION
  Report Type: Spontaneous
  Country: US (occurrence: US)
  Receive Date: 20170710
  Receipt Date: 20170710
  Transmission Date: 20171127
  Serious: Yes (Disabling)
  Sender: FDA-Public Use
  Company Number: US-SAOL THERAPEUTICS-2017SAO00102

PATIENT
  Age: 52 Year
  Sex: Male

DRUGS (4)
  1. BACLOFEN. [Suspect]
     Active Substance: BACLOFEN
     Indication: PAIN
  2. MORPHINE [Suspect]
     Active Substance: MORPHINE
     Route: 037
  3. BACLOFEN. [Suspect]
     Active Substance: BACLOFEN
     Indication: PAIN
     Dosage: UNK
     Route: 037
     Dates: end: 2014
  4. UNSPECIFIED OTHER INTRATHECAL MEDICATION [Suspect]
     Active Substance: UNSPECIFIED INGREDIENT
     Route: 037

REACTIONS (3)
  - Off label use [Unknown]
  - Rash [Recovered/Resolved]
  - Pain [Unknown]

NARRATIVE: CASE EVENT DATE: 20170110
